FAERS Safety Report 9719319 (Version 5)
Quarter: 2014Q1

REPORT INFORMATION
  Report Type: Report from Study
  Country: GR (occurrence: GR)
  Receive Date: 20131127
  Receipt Date: 20140219
  Transmission Date: 20141002
  Serious: Yes (Death, Hospitalization)
  Sender: FDA-Public Use
  Company Number: GR-PFIZER INC-2013264565

PATIENT
  Age: 56 Year
  Sex: Female
  Weight: 65 kg

DRUGS (9)
  1. TORISEL [Suspect]
     Indication: RENAL CANCER METASTATIC
     Dosage: 25 MG, WEEKLY
     Route: 042
     Dates: start: 20130725, end: 20130906
  2. BEVACIZUMAB [Suspect]
     Indication: RENAL CANCER METASTATIC
     Dosage: 670 MG, CYCLIC (EVERY 2 WEEKS)
     Route: 042
     Dates: start: 20130725, end: 20130830
  3. XYZAL [Concomitant]
     Indication: RASH
     Dosage: 5 MG, 1X/DAY
     Route: 048
     Dates: start: 20130816
  4. GLUCOPHAGE [Concomitant]
     Indication: DIABETES MELLITUS
     Dosage: 1700 MG, ONE TABLET TWICE DAILY
     Route: 048
     Dates: start: 20130906
  5. THYROHORMONE [Concomitant]
     Indication: HYPOTHYROIDISM
     Dosage: 0.1 MG, 1X/DAY
     Route: 048
     Dates: end: 20131116
  6. CYCLO 3 FORT /FRA/ [Concomitant]
     Indication: VARICOSE VEIN
     Dosage: 400 MG, 2X/DAY
     Route: 048
  7. VOLTAREN [Concomitant]
     Indication: CHEST PAIN
     Dosage: 75 MG, DAILY
     Route: 048
     Dates: start: 20130830
  8. VOLTAREN [Concomitant]
     Indication: CHEST PAIN
  9. FRUMIL [Concomitant]
     Indication: NUTRITIONAL SUPPLEMENTATION
     Dosage: UNK, DAILY
     Route: 048
     Dates: end: 20131101

REACTIONS (1)
  - Pneumonia [Fatal]
